FAERS Safety Report 8530914-2 (Version None)
Quarter: 2012Q3

REPORT INFORMATION
  Report Type: 
  Country: None (occurrence: None)
  Receive Date: 20120723
  Receipt Date: 20120717
  Transmission Date: 20120928
  Serious: Yes (Hospitalization)
  Sender: FDA-Public Use
  Company Number: FR-ROCHE-1089026

PATIENT
  Sex: Male

DRUGS (15)
  1. CIPROFLOXACIN HYDROCHLORIDE [Suspect]
     Indication: PRODUCT USED FOR UNKNOWN INDICATION
     Route: 048
     Dates: start: 20120622, end: 20120703
  2. PERINDOPRIL ERBUMINE [Concomitant]
  3. IMOVANE [Concomitant]
  4. CITALOPRAM HYDROBROMIDE [Concomitant]
  5. ROCEPHIN [Suspect]
     Indication: PRODUCT USED FOR UNKNOWN INDICATION
     Route: 058
     Dates: start: 20120622
  6. MEMANTINE HYDROCHLORIDE [Concomitant]
  7. CLONAZEPAM [Concomitant]
  8. RIFADIN [Suspect]
     Indication: PRODUCT USED FOR UNKNOWN INDICATION
     Route: 048
     Dates: start: 20120622
  9. DUPHALAC [Concomitant]
  10. CALCIPARINE [Concomitant]
  11. VANCOMYCIN [Concomitant]
     Dates: start: 20120619, end: 20120622
  12. ACETAMINOPHEN [Concomitant]
  13. NITROGLYCERIN [Concomitant]
  14. TAZOBACTAM [Concomitant]
     Dates: start: 20120622
  15. CALCIUM CARBONATE [Concomitant]

REACTIONS (2)
  - RENAL FAILURE [None]
  - RASH MACULO-PAPULAR [None]
